FAERS Safety Report 8762785 (Version 1)
Quarter: 2012Q4

REPORT INFORMATION
  Report Type: 
  Country: US (occurrence: US)
  Receive Date: 20120829
  Receipt Date: 20120829
  Transmission Date: 20130627
  Serious: No
  Sender: FDA-Public Use
  Company Number: US-PFIZER INC-2012208847

PATIENT
  Age: 28 Year
  Sex: Female
  Weight: 50.79 kg

DRUGS (1)
  1. ADVIL [Suspect]
     Indication: HEADACHE
     Dosage: 200 mg, once at the night
     Route: 048
     Dates: start: 20120825

REACTIONS (1)
  - Rash pruritic [Not Recovered/Not Resolved]
